FAERS Safety Report 9717788 (Version 3)
Quarter: 2014Q1

REPORT INFORMATION
  Report Type: Spontaneous
  Country: JP (occurrence: JP)
  Receive Date: 20131127
  Receipt Date: 20140224
  Transmission Date: 20141002
  Serious: Yes (Other)
  Sender: FDA-Public Use
  Company Number: JP-009507513-1311JPN008797

PATIENT
  Age: 34 Year
  Sex: Female

DRUGS (4)
  1. REFLEX [Suspect]
     Indication: DEPRESSION
     Dosage: 30MG/DAY
     Route: 048
     Dates: start: 20120217, end: 20120219
  2. REFLEX [Suspect]
     Dosage: 15MG/DAY
     Route: 048
  3. DEPROMEL [Suspect]
     Indication: DEPRESSION
     Dosage: 150MG/DAY
     Route: 048
     Dates: start: 20111125, end: 20120110
  4. NITRAZEPAM [Concomitant]
     Indication: INSOMNIA
     Dosage: 10MG DAILY
     Route: 048
     Dates: start: 20120217

REACTIONS (1)
  - Activation syndrome [Recovered/Resolved]
